FAERS Safety Report 4734783-8 (Version None)
Quarter: 2005Q3

REPORT INFORMATION
  Report Type: 
  Country: None (occurrence: None)
  Receive Date: 20050804
  Receipt Date: 20050801
  Transmission Date: 20060218
  Serious: Yes (Other)
  Sender: FDA-Public Use
  Company Number: DE-GLAXOSMITHKLINE-D0047203A

PATIENT
  Sex: Male

DRUGS (3)
  1. ZOFRAN [Suspect]
     Route: 065
  2. OXALIPLATIN [Suspect]
     Route: 065
  3. XELODA [Suspect]
     Route: 065

REACTIONS (2)
  - HEPATIC ENZYME INCREASED [None]
  - PANCREATIC ENZYMES INCREASED [None]
